FAERS Safety Report 4912133-1 (Version None)
Quarter: 2006Q1

REPORT INFORMATION
  Report Type: 
  Country: None (occurrence: None)
  Receive Date: 20060215
  Receipt Date: 20050725
  Transmission Date: 20060701
  Serious: No
  Sender: FDA-Public Use
  Company Number: US-GLAXOSMITHKLINE-A0567567A

PATIENT
  Age: 44 Year
  Sex: Male

DRUGS (8)
  1. VALTREX [Suspect]
     Dosage: 500MG THREE TIMES PER DAY
     Route: 048
     Dates: start: 20050526, end: 20050607
  2. SUCRALFATE [Concomitant]
  3. PANCREASE MT [Concomitant]
  4. URSODIOL [Concomitant]
  5. PROTONIX [Concomitant]
  6. REQUIP [Concomitant]
  7. ASPIRIN [Concomitant]
  8. OXYCONTIN [Concomitant]

REACTIONS (7)
  - BEDRIDDEN [None]
  - DIARRHOEA [None]
  - EATING DISORDER [None]
  - EPISTAXIS [None]
  - MOVEMENT DISORDER [None]
  - PYREXIA [None]
  - VOMITING [None]
